FAERS Safety Report 7642774-2 (Version None)
Quarter: 2011Q3

REPORT INFORMATION
  Report Type: 
  Country: None (occurrence: None)
  Receive Date: 20110728
  Receipt Date: 20110720
  Transmission Date: 20111222
  Serious: Yes (Other)
  Sender: FDA-Public Use
  Company Number: PHHY2011FR65467

PATIENT
  Sex: Male

DRUGS (3)
  1. VANCOMYCIN HCL [Suspect]
     Indication: OSTEOMYELITIS
     Dosage: 40 MG/KG, UNK
     Route: 042
     Dates: start: 20110531, end: 20110605
  2. VANCOMYCIN HCL [Suspect]
     Dosage: 2.5 G/DAY
     Route: 042
     Dates: start: 20110605, end: 20110607
  3. VANCOMYCIN HCL [Suspect]
     Dosage: 3 G, UNK
     Route: 042
     Dates: start: 20110608, end: 20110620

REACTIONS (2)
  - RASH MORBILLIFORM [None]
  - LYMPHADENOPATHY [None]
